FAERS Safety Report 23141638 (Version 2)
Quarter: 2023Q4

REPORT INFORMATION
  Report Type: Spontaneous
  Country: IT (occurrence: IT)
  Receive Date: 20231103
  Receipt Date: 20231122
  Transmission Date: 20240110
  Serious: Yes (Other)
  Sender: FDA-Public Use
  Company Number: IT-BAXTER-2023BAX034667

PATIENT

DRUGS (3)
  1. OLIMEL E [Suspect]
     Active Substance: AMINO ACIDS\DEXTROSE\ELECTROLYTES NOS\SOYBEAN OIL
     Dosage: 1 LITRE AT AN UNSPECIFIED FREQUENCY, ROUTE: PARENTERAL
     Route: 050
     Dates: start: 20231013, end: 20231025
  2. CERNEVIT [Suspect]
     Active Substance: VITAMINS
     Dosage: AT AN UNSPECIFIED DOSE AND FREQUENCY, 1 VIAL
     Route: 065
  3. MINERALS [Suspect]
     Active Substance: MINERALS
     Dosage: AT AN UNSPECIFIED DOSE AND FREQUENCY, 1 VIAL
     Route: 065

REACTIONS (3)
  - Anaphylactic shock [Unknown]
  - Periorbital oedema [Unknown]
  - Dyspnoea [Unknown]
